FAERS Safety Report 7088604-1 (Version None)
Quarter: 2010Q4

REPORT INFORMATION
  Report Type: 
  Country: None (occurrence: None)
  Receive Date: 20101028
  Receipt Date: 20101015
  Transmission Date: 20110411
  Serious: Yes (Hospitalization)
  Sender: FDA-Public Use
  Company Number: UTC-001600

PATIENT
  Age: 33 Year
  Sex: Female
  Weight: 39.09 kg

DRUGS (2)
  1. REMODULIN [Suspect]
     Dosage: 93.6 UG/KG (0.065 UG/KG,1 IN 1  MIN),SUBCUTANEOUS
     Route: 058
     Dates: start: 20081203
  2. TRACLEER [Concomitant]

REACTIONS (1)
  - NEPHROLITHIASIS [None]
